FAERS Safety Report 25181467 (Version 2)
Quarter: 2025Q2

REPORT INFORMATION
  Report Type: Spontaneous
  Country: US (occurrence: US)
  Receive Date: 20250410
  Receipt Date: 20250418
  Transmission Date: 20250717
  Serious: Yes (Hospitalization)
  Sender: TEVA
  Company Number: US-TEVA-VS-3317089

PATIENT
  Age: 64 Year
  Sex: Male

DRUGS (2)
  1. LOPERAMIDE [Interacting]
     Active Substance: LOPERAMIDE
     Indication: Diarrhoea
     Route: 065
  2. ABIRATERONE ACETATE [Interacting]
     Active Substance: ABIRATERONE ACETATE
     Indication: Prostate cancer
     Route: 065

REACTIONS (3)
  - Electrocardiogram QT prolonged [Unknown]
  - Torsade de pointes [Unknown]
  - Drug interaction [Unknown]
